FAERS Safety Report 20352664 (Version 2)
Quarter: 2022Q1

REPORT INFORMATION
  Report Type: Spontaneous
  Country: JP (occurrence: JP)
  Receive Date: 20220119
  Receipt Date: 20220211
  Transmission Date: 20220423
  Serious: Yes (Hospitalization)
  Sender: FDA-Public Use
  Company Number: JP-TEVA-2022-JP-1999051

PATIENT
  Age: 79 Year
  Sex: Male

DRUGS (2)
  1. OXALIPLATIN [Suspect]
     Active Substance: OXALIPLATIN
     Indication: Colon cancer
     Dosage: 1200 MILLIGRAM DAILY; THE SIXTH TO EIGHTH DOSE WAS REDUCED TO 160 MG/DAY
     Route: 065
  2. CAPECITABINE [Concomitant]
     Active Substance: CAPECITABINE
     Indication: Colon cancer
     Dosage: 3600 MILLIGRAM DAILY; DAY 1-14
     Route: 065

REACTIONS (1)
  - Acute myeloid leukaemia [Not Recovered/Not Resolved]
